FAERS Safety Report 12570325 (Version 1)
Quarter: 2016Q3

REPORT INFORMATION
  Report Type: Spontaneous
  Country: BR (occurrence: BR)
  Receive Date: 20160719
  Receipt Date: 20160719
  Transmission Date: 20161109
  Serious: Yes (Hospitalization)
  Sender: FDA-Public Use
  Company Number: BR-PFIZER INC-2016344090

PATIENT
  Age: 75 Year
  Sex: Female
  Weight: 65 kg

DRUGS (3)
  1. LOSARTEC [Concomitant]
     Indication: HYPERTENSION
     Dosage: UNK
     Route: 048
  2. LIPITOR [Suspect]
     Active Substance: ATORVASTATIN CALCIUM
     Indication: BLOOD CHOLESTEROL
     Dosage: 1 TABLET OF 10MG DAILY
     Route: 048
     Dates: start: 2014, end: 2015
  3. SYNTHROID [Concomitant]
     Active Substance: LEVOTHYROXINE SODIUM
     Indication: THYROID DISORDER
     Dosage: UNK
     Route: 048

REACTIONS (4)
  - Gastritis [Unknown]
  - Anaemia [Unknown]
  - Blood pressure decreased [Unknown]
  - Hiatus hernia [Unknown]
